FAERS Safety Report 4779175-0 (Version None)
Quarter: 2005Q3

REPORT INFORMATION
  Report Type: 
  Country: None (occurrence: None)
  Receive Date: 20050923
  Receipt Date: 20050914
  Transmission Date: 20060218
  Serious: Yes (Other)
  Sender: FDA-Public Use
  Company Number: S05-USA-04309-01

PATIENT
  Age: 29 Year
  Sex: Female

DRUGS (4)
  1. LEXAPRO [Suspect]
     Indication: DEPRESSION
     Dosage: 20 MG QD PO
     Route: 048
     Dates: start: 20050829, end: 20050101
  2. LEXAPRO [Suspect]
     Indication: DEPRESSION
     Dosage: 15 MG QD PO
     Route: 048
     Dates: start: 20050101, end: 20050909
  3. LEXAPRO [Suspect]
     Indication: DEPRESSION
     Dosage: 20 MG QD PO
     Route: 048
     Dates: end: 20050827
  4. DEPO-PROVERA SUSPENSION/INJ [Concomitant]

REACTIONS (15)
  - AMNESIA [None]
  - CHOLECYSTECTOMY [None]
  - CONFUSIONAL STATE [None]
  - DIZZINESS [None]
  - DYSGEUSIA [None]
  - FAECAL INCONTINENCE [None]
  - FEELING ABNORMAL [None]
  - HEADACHE [None]
  - HEPATIC STEATOSIS [None]
  - HYPOAESTHESIA [None]
  - INSOMNIA [None]
  - NAUSEA [None]
  - OVARIAN CYST [None]
  - PAIN [None]
  - SENSORY LOSS [None]
